FAERS Safety Report 4868076-5 (Version None)
Quarter: 2005Q4

REPORT INFORMATION
  Report Type: 
  Country: None (occurrence: None)
  Receive Date: 20051229
  Receipt Date: 20051219
  Transmission Date: 20060501
  Serious: Yes (Death)
  Sender: FDA-Public Use
  Company Number: PHBS2005GB19056

PATIENT

DRUGS (1)
  1. DICLOFENAC [Suspect]

REACTIONS (5)
  - ALANINE AMINOTRANSFERASE INCREASED [None]
  - BLOOD BILIRUBIN INCREASED [None]
  - HEPATIC FAILURE [None]
  - MYCOTIC ANEURYSM [None]
  - PROTHROMBIN TIME PROLONGED [None]
